FAERS Safety Report 5925163-8 (Version None)
Quarter: 2008Q4

REPORT INFORMATION
  Report Type: 
  Country: None (occurrence: None)
  Receive Date: 20081020
  Receipt Date: 20081020
  Transmission Date: 20090506
  Serious: Yes (Hospitalization)
  Sender: FDA-Public Use
  Company Number: None

PATIENT
  Age: 50 Year
  Sex: Female
  Weight: 57.6068 kg

DRUGS (1)
  1. PROPOFOL [Suspect]
     Indication: COLONOSCOPY
     Dates: start: 20081006, end: 20081006

REACTIONS (7)
  - ASTHENIA [None]
  - CHILLS [None]
  - FATIGUE [None]
  - HEADACHE [None]
  - HYPOTENSION [None]
  - PAIN [None]
  - PYREXIA [None]
